FAERS Safety Report 10236202 (Version 1)
Quarter: 2014Q2

REPORT INFORMATION
  Report Type: Spontaneous
  Country: JP (occurrence: JP)
  Receive Date: 20140613
  Receipt Date: 20140613
  Transmission Date: 20141212
  Serious: Yes (Hospitalization)
  Sender: FDA-Public Use
  Company Number: JP-ASTRAZENECA-2014SE40223

PATIENT
  Age: 79 Year
  Sex: Male

DRUGS (5)
  1. NEXIUM [Suspect]
     Indication: PROPHYLAXIS AGAINST GASTROINTESTINAL ULCER
     Route: 048
     Dates: start: 20140125
  2. NEXIUM [Suspect]
     Indication: PROPHYLAXIS AGAINST GASTROINTESTINAL ULCER
     Route: 048
     Dates: start: 20140215
  3. ASPIRIN [Concomitant]
     Dosage: DOSE UNKNOWN
     Route: 065
  4. HISTAMINE 2 BLOCKER [Concomitant]
  5. STIBRON [Concomitant]
     Indication: ERYTHEMA

REACTIONS (1)
  - Drug eruption [Recovering/Resolving]
